FAERS Safety Report 11679892 (Version 3)
Quarter: 2015Q4

REPORT INFORMATION
  Report Type: Spontaneous
  Country: US (occurrence: US)
  Receive Date: 20151027
  Receipt Date: 20151110
  Transmission Date: 20160304
  Serious: No
  Sender: FDA-Public Use
  Company Number: US-ELI_LILLY_AND_COMPANY-US201011004555

PATIENT
  Age: 68 Year
  Sex: Female

DRUGS (4)
  1. PLAVIX [Concomitant]
     Active Substance: CLOPIDOGREL BISULFATE
     Dates: start: 2008
  2. FORTEO [Suspect]
     Active Substance: TERIPARATIDE
     Indication: OSTEOPOROSIS
     Dosage: 20 UG, DAILY (1/D)
     Route: 058
  3. FORTEO [Suspect]
     Active Substance: TERIPARATIDE
     Dosage: 20 UG, DAILY (1/D)
     Route: 058
  4. FORTEO [Suspect]
     Active Substance: TERIPARATIDE
     Dosage: 20 UG, QD
     Route: 058

REACTIONS (14)
  - Arthralgia [Recovered/Resolved]
  - Hypotension [Unknown]
  - Dizziness [Unknown]
  - Contusion [Unknown]
  - Musculoskeletal pain [Unknown]
  - Hypertension [Recovered/Resolved]
  - Cholelithiasis [Unknown]
  - Pain in extremity [Unknown]
  - Bone density decreased [Unknown]
  - Pain [Unknown]
  - Fear [Recovered/Resolved]
  - Injection site pain [Unknown]
  - Nephrolithiasis [Unknown]
  - Vertigo [Unknown]

NARRATIVE: CASE EVENT DATE: 201010
